FAERS Safety Report 17122751 (Version 1)
Quarter: 2019Q4

REPORT INFORMATION
  Report Type: Report from Study
  Country: DE (occurrence: DE)
  Receive Date: 20191206
  Receipt Date: 20191206
  Transmission Date: 20200122
  Serious: Yes (Hospitalization, Other)
  Sender: FDA-Public Use
  Company Number: DE-ACTELION-A-CH2019-193369

PATIENT
  Age: 42 Year
  Sex: Female
  Weight: 77 kg

DRUGS (31)
  1. TREPROSTINIL. [Suspect]
     Active Substance: TREPROSTINIL
     Dosage: 25.6 NG/KG, QD
     Route: 065
     Dates: start: 20190817, end: 20190824
  2. TREPROSTINIL. [Suspect]
     Active Substance: TREPROSTINIL
     Dosage: 21.3 NG/KG, QD
     Route: 065
     Dates: start: 20190719, end: 20190726
  3. TREPROSTINIL. [Suspect]
     Active Substance: TREPROSTINIL
     Dosage: 20.3 NG/KG, QD
     Route: 065
     Dates: start: 20190711, end: 20190719
  4. AMLODIPIN [Concomitant]
     Active Substance: AMLODIPINE BESYLATE
     Indication: HYPERTENSION
     Dosage: UNK
     Route: 048
     Dates: start: 2017
  5. PARACETAMOL [Concomitant]
     Active Substance: ACETAMINOPHEN
     Dosage: UNK
     Route: 048
     Dates: end: 20190521
  6. TREPROSTINIL. [Suspect]
     Active Substance: TREPROSTINIL
     Dosage: 13.9 NG/KG, QD
     Route: 065
     Dates: start: 20190515, end: 20190711
  7. ADEMPAS [Concomitant]
     Active Substance: RIOCIGUAT
     Indication: PULMONARY ARTERIAL HYPERTENSION
     Dosage: 3 MG, QD
     Dates: start: 20191118
  8. TREPROSTINIL. [Suspect]
     Active Substance: TREPROSTINIL
     Dosage: 26.7 NG/KG, QD
     Route: 065
     Dates: start: 20190824, end: 20190831
  9. SILDENAFIL. [Concomitant]
     Active Substance: SILDENAFIL
     Dosage: 60 MG, QD
     Route: 048
     Dates: start: 20190521, end: 20191115
  10. SILDENAFIL. [Concomitant]
     Active Substance: SILDENAFIL
     Dosage: 60 UNK QD
     Route: 048
     Dates: start: 20190321, end: 20190509
  11. TREPROSTINIL. [Suspect]
     Active Substance: TREPROSTINIL
     Dosage: 24.6 NG/KG, QD
     Route: 065
     Dates: start: 20190810, end: 20190817
  12. SILDENAFIL. [Concomitant]
     Active Substance: SILDENAFIL
     Dosage: 75 UNK QD
     Route: 048
     Dates: start: 20190509, end: 20190520
  13. ONDANSETRON [Concomitant]
     Active Substance: ONDANSETRON
     Dosage: UNK
     Route: 042
     Dates: start: 20190517, end: 20190521
  14. POTASSIUM CHLORIDE. [Concomitant]
     Active Substance: POTASSIUM CHLORIDE
     Dosage: UNK
     Dates: start: 20190516, end: 20190521
  15. OPSUMIT [Suspect]
     Active Substance: MACITENTAN
     Indication: PORTAL HYPERTENSION
     Dosage: 10 MG, QD
     Route: 048
     Dates: start: 20190510
  16. DIMENHYDRINAT [Concomitant]
     Active Substance: DIMENHYDRINATE
     Indication: VOMITING
     Dosage: UNK
     Dates: start: 20190517, end: 20190521
  17. TORASEMIDE [Concomitant]
     Active Substance: TORSEMIDE
     Indication: HYPERTENSION
     Dosage: UNK
     Route: 048
  18. TEMOZOLOMIDE. [Concomitant]
     Active Substance: TEMOZOLOMIDE
     Indication: PANCREATIC CARCINOMA
     Dosage: UNK
     Route: 048
     Dates: start: 20191016
  19. CLEXANE [Concomitant]
     Active Substance: ENOXAPARIN SODIUM
     Indication: PROPHYLAXIS
     Dosage: UNK
     Route: 058
     Dates: start: 20191115, end: 20191120
  20. LANREOTIDA [Concomitant]
     Active Substance: LANREOTIDE
     Indication: ADENOCARCINOMA PANCREAS
     Dosage: UNK
     Route: 048
     Dates: end: 20191011
  21. PANTOPRAZOLE [Concomitant]
     Active Substance: PANTOPRAZOLE
     Indication: PROPHYLAXIS
     Dosage: UNK
     Route: 048
  22. TREPROSTINIL. [Suspect]
     Active Substance: TREPROSTINIL
     Dosage: 22.4 NG/KG, QD
     Route: 065
     Dates: start: 20190726, end: 20190803
  23. ENOXAPARIN [Concomitant]
     Active Substance: ENOXAPARIN
     Dosage: UNK
     Dates: start: 20190514, end: 20190520
  24. CAPECITABINE. [Concomitant]
     Active Substance: CAPECITABINE
     Indication: PANCREATIC CARCINOMA
     Dosage: UNK
     Route: 048
     Dates: start: 20191007
  25. INSULIN GLARGINE [Concomitant]
     Active Substance: INSULIN GLARGINE
     Indication: DIABETES MELLITUS
     Dosage: UNK
     Route: 058
     Dates: start: 2017
  26. KREON [Concomitant]
     Active Substance: PANCRELIPASE
     Indication: PANCREATIC DISORDER
     Dosage: UNK
     Route: 048
  27. TREPROSTINIL. [Suspect]
     Active Substance: TREPROSTINIL
     Indication: PULMONARY ARTERIAL HYPERTENSION
     Dosage: 27.8 NG/KG, QD
     Route: 065
     Dates: start: 20190831
  28. TREPROSTINIL. [Suspect]
     Active Substance: TREPROSTINIL
     Dosage: 23.5 NG/KG, QD
     Route: 065
     Dates: start: 20190803, end: 20190810
  29. ENOXAPARIN [Concomitant]
     Active Substance: ENOXAPARIN
     Indication: THROMBOSIS PROPHYLAXIS
     Dosage: UNK
     Route: 058
     Dates: start: 20190711
  30. DEKRISTOL [Concomitant]
     Active Substance: CHOLECALCIFEROL
     Indication: PROPHYLAXIS
     Dosage: UNK
     Route: 048
     Dates: start: 20191121
  31. POTASSIUM [Concomitant]
     Active Substance: POTASSIUM
     Dosage: UNK
     Route: 048
     Dates: start: 20190515, end: 20190521

REACTIONS (4)
  - Liver disorder [Unknown]
  - Catheterisation cardiac [Recovered/Resolved]
  - Bronchitis [Recovered/Resolved]
  - Transplant evaluation [Recovered/Resolved]

NARRATIVE: CASE EVENT DATE: 20190711
